FAERS Safety Report 6308942-7 (Version None)
Quarter: 2009Q3

REPORT INFORMATION
  Report Type: 
  Country: None (occurrence: None)
  Receive Date: 20090813
  Receipt Date: 20090623
  Transmission Date: 20100115
  Serious: No
  Sender: FDA-Public Use
  Company Number: US-ALLERGAN-0908862US

PATIENT
  Sex: Female

DRUGS (2)
  1. COMBIGAN [Suspect]
     Indication: GLAUCOMA
     Dosage: 1 GTT, SINGLE
     Route: 047
     Dates: start: 20090622, end: 20090622
  2. ZESTORETIC [Concomitant]
     Indication: HYPERTENSION
     Dosage: 20/25

REACTIONS (2)
  - HYPOTENSION [None]
  - MALAISE [None]
